FAERS Safety Report 8106427-9 (Version None)
Quarter: 2012Q1

REPORT INFORMATION
  Report Type: 
  Country: None (occurrence: None)
  Receive Date: 20120202
  Receipt Date: 20120201
  Transmission Date: 20120608
  Serious: Yes (Other)
  Sender: FDA-Public Use
  Company Number: US-AMGEN-USASP2012006600

PATIENT
  Age: 30 Year
  Sex: Female
  Weight: 47.2 kg

DRUGS (2)
  1. NEULASTA [Suspect]
     Indication: CHEMOTHERAPY
     Dates: start: 20110101
  2. ANTINEOPLASTIC AGENTS [Concomitant]
     Indication: BREAST CANCER

REACTIONS (2)
  - NEUTROPHIL COUNT DECREASED [None]
  - THERAPEUTIC RESPONSE DELAYED [None]
